FAERS Safety Report 19636949 (Version 1)
Quarter: 2021Q3

REPORT INFORMATION
  Report Type: Spontaneous
  Country: DE (occurrence: DE)
  Receive Date: 20210730
  Receipt Date: 20210730
  Transmission Date: 20211014
  Serious: Yes (Other)
  Sender: FDA-Public Use
  Company Number: DE-PFIZER INC-2021895629

PATIENT
  Age: 77 Year
  Sex: Male

DRUGS (6)
  1. TAMSULOSIN [Concomitant]
     Active Substance: TAMSULOSIN
     Indication: BENIGN PROSTATIC HYPERPLASIA
     Dosage: 1X DAILY 0.4MG
  2. PANTOPRAZOLE [Concomitant]
     Active Substance: PANTOPRAZOLE
  3. BISOPROLOL [Concomitant]
     Active Substance: BISOPROLOL
     Dosage: 0.5?0?0
  4. CANDESARTAN. [Concomitant]
     Active Substance: CANDESARTAN
     Dosage: FREQ:12 H;1?0?1
  5. LATANOPROST PFIZER [Suspect]
     Active Substance: LATANOPROST
     Dosage: UNK
     Dates: start: 202106
  6. VITAMIN B12 [VITAMIN B12 NOS] [Concomitant]
     Active Substance: CYANOCOBALAMIN
     Dosage: INJEKTION

REACTIONS (8)
  - Palpitations [Unknown]
  - Chest discomfort [Unknown]
  - Headache [Unknown]
  - Fatigue [Unknown]
  - Blood pressure increased [Unknown]
  - Swelling of eyelid [Unknown]
  - Pain [Unknown]
  - Nausea [Unknown]

NARRATIVE: CASE EVENT DATE: 2021
